FAERS Safety Report 25347457 (Version 1)
Quarter: 2025Q2

REPORT INFORMATION
  Report Type: Spontaneous
  Country: US (occurrence: None)
  Receive Date: 20250522
  Receipt Date: 20250522
  Transmission Date: 20250717
  Serious: Yes (Hospitalization)
  Sender: FDA-CTU
  Company Number: None

PATIENT
  Sex: Female

DRUGS (11)
  1. SKYRIZI [Suspect]
     Active Substance: RISANKIZUMAB-RZAA
     Indication: Crohn^s disease
     Dates: start: 20250206
  2. ALLEGRA ALRG TAB 30MG [Concomitant]
  3. ATORVASTATIN TAB 10MG [Concomitant]
  4. ATORVASTATIN [Concomitant]
     Active Substance: ATORVASTATIN
  5. BENTYL CAP 10MG [Concomitant]
  6. LOMOTIL TAB 2.5MG [Concomitant]
  7. PROBIOTIC CAP [Concomitant]
  8. PROPRANOLOL CAP 60MG ER [Concomitant]
  9. PROTONIX TAB 40MG [Concomitant]
  10. PROZAC CAP 10MG [Concomitant]
  11. SINGULAIR [Concomitant]
     Active Substance: MONTELUKAST SODIUM

REACTIONS (14)
  - Irritable bowel syndrome [None]
  - Diarrhoea [None]
  - Abdominal pain upper [None]
  - Fatigue [None]
  - Nausea [None]
  - Vomiting [None]
  - Constipation [None]
  - Anal fissure [None]
  - Abscess [None]
  - Alopecia [None]
  - Alopecia [None]
  - Abdominal pain [None]
  - Infection [None]
  - Quality of life decreased [None]
